FAERS Safety Report 4586802-X (Version None)
Quarter: 2005Q1

REPORT INFORMATION
  Report Type: 
  Country: None (occurrence: None)
  Receive Date: 20050215
  Receipt Date: 20030908
  Transmission Date: 20050727
  Serious: Yes (Hospitalization)
  Sender: FDA-Public Use
  Company Number: 179308

PATIENT
  Age: 47 Year
  Sex: Female
  Weight: 71.6683 kg

DRUGS (5)
  1. AVONEX [Suspect]
     Indication: MULTIPLE SCLEROSIS
     Dosage: 30 UG; QW; IM
     Route: 030
     Dates: start: 20020101, end: 20020701
  2. AVONEX [Suspect]
     Indication: MULTIPLE SCLEROSIS
     Dosage: 30 UG; QW; IM
     Route: 030
     Dates: start: 20030801
  3. INDERAL [Concomitant]
  4. LOESTRIN 1.5/30 [Concomitant]
  5. PERSANTINE [Concomitant]

REACTIONS (2)
  - INFLUENZA LIKE ILLNESS [None]
  - SUBARACHNOID HAEMORRHAGE [None]
